FAERS Safety Report 10685360 (Version 1)
Quarter: 2014Q4

REPORT INFORMATION
  Report Type: Spontaneous
  Country: US (occurrence: US)
  Receive Date: 20141231
  Receipt Date: 20141231
  Transmission Date: 20150529
  Serious: No
  Sender: FDA-Public Use
  Company Number: US-GLAXOSMITHKLINE-US2014GSK044491

PATIENT
  Sex: Female

DRUGS (1)
  1. EPIVIR HBV [Suspect]
     Active Substance: LAMIVUDINE
     Indication: HEPATITIS
     Dosage: 150 MG, UNK
     Dates: start: 201403

REACTIONS (2)
  - Cataract [Unknown]
  - Eye disorder [Not Recovered/Not Resolved]
